FAERS Safety Report 10372010 (Version 2)
Quarter: 2014Q3

REPORT INFORMATION
  Report Type: Report from Study
  Country: CA (occurrence: CA)
  Receive Date: 20140808
  Receipt Date: 20140821
  Transmission Date: 20150326
  Serious: Yes (Other)
  Sender: FDA-Public Use
  Company Number: CA-JNJFOC-20140803847

PATIENT
  Age: 28 Year
  Sex: Male
  Weight: 93.5 kg

DRUGS (1)
  1. REMICADE [Suspect]
     Active Substance: INFLIXIMAB
     Indication: COLITIS ULCERATIVE
     Dosage: EVERY 7 TO 8 WEEKS
     Route: 042
     Dates: start: 20120524

REACTIONS (3)
  - Hyperthermia [Unknown]
  - Secretion discharge [Unknown]
  - Productive cough [Unknown]

NARRATIVE: CASE EVENT DATE: 20140405
